FAERS Safety Report 15120719 (Version 1)
Quarter: 2018Q3

REPORT INFORMATION
  Report Type: Spontaneous
  Country: US (occurrence: US)
  Receive Date: 20180709
  Receipt Date: 20180709
  Transmission Date: 20181010
  Serious: No
  Sender: FDA-Public Use
  Company Number: US-SA-2018SA160637

PATIENT

DRUGS (1)
  1. ARAVA [Suspect]
     Active Substance: LEFLUNOMIDE
     Dosage: UNK, UNK
     Route: 065

REACTIONS (7)
  - Fatigue [Unknown]
  - Psoriasis [Unknown]
  - White blood cell disorder [Unknown]
  - Palpitations [Unknown]
  - Adverse drug reaction [Unknown]
  - Alopecia [Unknown]
  - Pruritus [Unknown]
